FAERS Safety Report 22640741 (Version 2)
Quarter: 2023Q4

REPORT INFORMATION
  Report Type: Spontaneous
  Country: US (occurrence: US)
  Receive Date: 20230626
  Receipt Date: 20231010
  Transmission Date: 20240110
  Serious: Yes (Other)
  Sender: FDA-Public Use
  Company Number: US-LUPIN PHARMACEUTICALS INC.-2023-04829

PATIENT
  Age: 55 Year
  Sex: Female

DRUGS (13)
  1. TRAMADOL [Suspect]
     Active Substance: TRAMADOL\TRAMADOL HYDROCHLORIDE
     Indication: Arthralgia
     Dosage: 2 DOSAGE FORM, QID (EVERY 6 HOURS DOSAGE OF TRAMADOL WAS FURTHER INCREASED TO TWO 50 MG TABLETS FOUR
     Route: 065
     Dates: start: 2017
  2. TRAMADOL [Suspect]
     Active Substance: TRAMADOL\TRAMADOL HYDROCHLORIDE
     Indication: Musculoskeletal chest pain
     Dosage: 25 DOSAGE FORM, QD, ADDITIONAL TRAMADOL ^OFF THE STREET^ FOR SEVERAL YEARS, DESCRIBED TAKING 20-25 T
     Route: 065
  3. TRAMADOL [Suspect]
     Active Substance: TRAMADOL\TRAMADOL HYDROCHLORIDE
     Dosage: 15 DOSAGE FORM, QD, PRESCRIBED 50 MG TRAMADOL TABLETS WITH INSTRUCTIONS TO TAKE 150 MG (THREE TABLET
     Route: 065
     Dates: start: 2021, end: 2021
  4. TRAMADOL [Suspect]
     Active Substance: TRAMADOL\TRAMADOL HYDROCHLORIDE
     Dosage: 3 DOSAGE FORM, QID (, INSTRUCTED TO DECREASE DAILY DOSE FURTHER BY TAKING TRAMADOL 150 MG (THREE 50
     Route: 065
     Dates: start: 2021, end: 2021
  5. TRAMADOL [Suspect]
     Active Substance: TRAMADOL\TRAMADOL HYDROCHLORIDE
     Dosage: 180 DOSAGE FORM, 50-100 MG, 180 TABLETS TO TAKE FOUR TIMES DAILY
     Route: 065
  6. TRAMADOL [Suspect]
     Active Substance: TRAMADOL\TRAMADOL HYDROCHLORIDE
     Dosage: 6 DOSAGE FORM, QD, TAPERED FROM 12 TABLETS OF 50 MG TRAMADOL PER DAY TO SIX TABLETS OF 50 MG TRAMADO
     Route: 065
     Dates: start: 2021, end: 2021
  7. TRAMADOL [Suspect]
     Active Substance: TRAMADOL\TRAMADOL HYDROCHLORIDE
     Dosage: 20 DOSAGE FORM, QD, ADDITIONAL TRAMADOL ^OFF THE STREET^ FOR SEVERAL YEARS, DESCRIBED TAKING 20-25 T
     Route: 065
  8. TRAMADOL [Suspect]
     Active Substance: TRAMADOL\TRAMADOL HYDROCHLORIDE
     Dosage: 1 DOSAGE FORM, TID (, EVERY 8 HOUR TRAMADOL 50 MG TABLETS IN 2011 DOSED THREE TIMES DAILY)
     Route: 065
     Dates: start: 2011
  9. TRAMADOL [Suspect]
     Active Substance: TRAMADOL\TRAMADOL HYDROCHLORIDE
     Dosage: 1 DOSAGE FORM, QID SLOWLY ESCALATED THE DOSE TO FOUR TIMES DAILY, PRESCRIBING REFILLS RANGING FROM 9
     Route: 065
  10. OXYCODONE [Suspect]
     Active Substance: OXYCODONE
     Indication: Arthralgia
     Dosage: 4 DOSAGE FORM, QD,ACQUIRED SEVERAL HUNDRED OXYCODONE FROM A DECEASED FAMILY MEMBER. WHEN HER TRAMADO
     Route: 065
  11. OXYCODONE [Suspect]
     Active Substance: OXYCODONE
     Indication: Musculoskeletal chest pain
  12. CYCLOBENZAPRINE [Concomitant]
     Active Substance: CYCLOBENZAPRINE
     Indication: Musculoskeletal chest pain
     Dosage: UNK, INTERMITTENT USE
     Route: 065
  13. GABAPENTIN [Concomitant]
     Active Substance: GABAPENTIN
     Indication: Musculoskeletal chest pain
     Dosage: UNK, INTERMITTENT USE
     Route: 065

REACTIONS (10)
  - Electric shock sensation [Recovering/Resolving]
  - Analgesic drug level increased [Unknown]
  - Agitation [Recovering/Resolving]
  - Drug dependence [Recovered/Resolved]
  - Discomfort [Recovering/Resolving]
  - Drug use disorder [Recovered/Resolved]
  - Drug withdrawal syndrome [Recovering/Resolving]
  - Intentional product misuse [Unknown]
  - Anxiety [Recovering/Resolving]
  - Disturbance in attention [Recovering/Resolving]
